FAERS Safety Report 21292224 (Version 5)
Quarter: 2023Q2

REPORT INFORMATION
  Report Type: Report from Study
  Country: JP (occurrence: JP)
  Receive Date: 20220905
  Receipt Date: 20230609
  Transmission Date: 20230721
  Serious: Yes (Death, Hospitalization, Other)
  Sender: FDA-Public Use
  Company Number: JP-ASTELLAS-2022JP013030

PATIENT
  Age: 76 Year
  Sex: Male
  Weight: 62.7 kg

DRUGS (13)
  1. ENFORTUMAB VEDOTIN [Suspect]
     Active Substance: ENFORTUMAB VEDOTIN
     Indication: Transitional cell carcinoma
     Route: 041
     Dates: start: 20220322, end: 20220405
  2. ENFORTUMAB VEDOTIN [Suspect]
     Active Substance: ENFORTUMAB VEDOTIN
     Route: 041
     Dates: start: 20220426, end: 20220426
  3. ENFORTUMAB VEDOTIN [Suspect]
     Active Substance: ENFORTUMAB VEDOTIN
     Route: 041
     Dates: start: 20220510, end: 20220510
  4. ENFORTUMAB VEDOTIN [Suspect]
     Active Substance: ENFORTUMAB VEDOTIN
     Route: 041
     Dates: start: 20220531, end: 20220607
  5. ENFORTUMAB VEDOTIN [Suspect]
     Active Substance: ENFORTUMAB VEDOTIN
     Route: 041
     Dates: start: 20220621, end: 20220726
  6. PEMBROLIZUMAB [Concomitant]
     Active Substance: PEMBROLIZUMAB
     Indication: Transitional cell carcinoma
     Dosage: UNK UNK, UNKNOWN FREQ.
     Route: 065
     Dates: start: 20211207, end: 20220301
  7. HEPARINOID [Concomitant]
     Indication: Prophylaxis
     Dosage: APPROPRIATE AMOUNT (MG), THRICE DAILY
     Route: 050
     Dates: start: 20220322, end: 20220404
  8. WHITE PETROLATUM [Concomitant]
     Active Substance: PETROLATUM
     Indication: Prophylaxis
     Dosage: APPROPRIATE AMOUNT (MG), THRICE DAILY
     Route: 050
     Dates: start: 20220322, end: 20220404
  9. SAHNE [Concomitant]
     Indication: Prophylaxis
     Dosage: APPROPRIATE AMOUNT (MG), THRICE DAILY
     Route: 050
     Dates: start: 20220322, end: 20220404
  10. DIPHENHYDRAMINE [Concomitant]
     Active Substance: DIPHENHYDRAMINE
     Indication: Urticaria
     Dosage: APPROPRIATE AMOUNT (MG), SEVERAL TIMES/DAY
     Route: 050
     Dates: start: 20220726, end: 20220920
  11. Glycyron [Concomitant]
     Indication: Blood alkaline phosphatase increased
     Route: 048
     Dates: start: 20220806, end: 20220812
  12. Glycyron [Concomitant]
     Indication: Aspartate aminotransferase increased
  13. Glycyron [Concomitant]
     Indication: Alanine aminotransferase increased

REACTIONS (7)
  - Anaemia [Fatal]
  - Gamma-glutamyltransferase increased [Not Recovered/Not Resolved]
  - Urticaria [Recovered/Resolved]
  - Blood alkaline phosphatase increased [Not Recovered/Not Resolved]
  - Aspartate aminotransferase increased [Not Recovered/Not Resolved]
  - Alanine aminotransferase increased [Recovered/Resolved]
  - Cystitis [Recovering/Resolving]

NARRATIVE: CASE EVENT DATE: 20220726
